FAERS Safety Report 20907636 (Version 1)
Quarter: 2022Q2

REPORT INFORMATION
  Report Type: Spontaneous
  Country: US (occurrence: US)
  Receive Date: 20220602
  Receipt Date: 20220602
  Transmission Date: 20220721
  Serious: No
  Sender: FDA-Public Use
  Company Number: US-002147023-NVSC2022US095265

PATIENT

DRUGS (6)
  1. JAKAFI [Suspect]
     Active Substance: RUXOLITINIB
     Indication: Acute graft versus host disease
     Dosage: UNK
     Route: 065
  2. BASILIXIMAB [Suspect]
     Active Substance: BASILIXIMAB
     Indication: Acute graft versus host disease
     Dosage: 20 MG ON DAYS PLUS 1 AND PLUS 4, THEN WEEKLY (9 DOSES)
     Route: 042
  3. ETANERCEPT [Suspect]
     Active Substance: ETANERCEPT
     Indication: Acute graft versus host disease
     Dosage: 25 MG, BIW
     Route: 058
  4. ETANERCEPT [Suspect]
     Active Substance: ETANERCEPT
     Dosage: 25 MG, QW
     Route: 058
  5. PREDNISONE [Concomitant]
     Active Substance: PREDNISONE
     Indication: Acute graft versus host disease in intestine
     Dosage: 2 MG/KG, QD
     Route: 065
  6. PREDNISONE [Concomitant]
     Active Substance: PREDNISONE
     Indication: Acute graft versus host disease in liver

REACTIONS (2)
  - Product use in unapproved indication [Unknown]
  - Therapy partial responder [Unknown]
